FAERS Safety Report 26025952 (Version 1)
Quarter: 2025Q4

REPORT INFORMATION
  Report Type: Spontaneous
  Country: EU (occurrence: EU)
  Receive Date: 20251111
  Receipt Date: 20251111
  Transmission Date: 20260118
  Serious: Yes (Other)
  Sender: ANI
  Company Number: EU-ANIPHARMA-2025-DE-000058

PATIENT
  Age: 46 Year
  Sex: Male
  Weight: 150 kg

DRUGS (1)
  1. CANDESARTAN CILEXETIL [Suspect]
     Active Substance: CANDESARTAN CILEXETIL
     Indication: Hypertension
     Route: 048
     Dates: start: 20190607, end: 20250430

REACTIONS (2)
  - Abdominal pain lower [Recovered/Resolved]
  - Terminal ileitis [Recovered/Resolved]

NARRATIVE: CASE EVENT DATE: 20190615
